FAERS Safety Report 8234826-3 (Version None)
Quarter: 2012Q1

REPORT INFORMATION
  Report Type: 
  Country: None (occurrence: None)
  Receive Date: 20120326
  Receipt Date: 20120312
  Transmission Date: 20120608
  Serious: Yes (Hospitalization)
  Sender: FDA-Public Use
  Company Number: DE-ROCHE-1052394

PATIENT
  Sex: Female
  Weight: 68 kg

DRUGS (8)
  1. ATACAND [Concomitant]
     Dates: start: 20111220
  2. PACLITAXEL [Suspect]
     Indication: BREAST CANCER
     Route: 042
     Dates: start: 20111124
  3. AVASTIN [Suspect]
     Indication: BREAST CANCER
     Route: 042
     Dates: start: 20111124
  4. AMOXICILLIN [Concomitant]
     Dates: start: 20110309, end: 20120311
  5. NORVASC [Concomitant]
     Dates: start: 20111220
  6. HYDROCHLOROTHIAZIDE [Concomitant]
     Dates: start: 20111220
  7. PANTOPRAZOLE [Concomitant]
     Dates: start: 20111124, end: 20120304
  8. DOXORUBICIN HCL [Suspect]
     Indication: BREAST CANCER
     Route: 042
     Dates: start: 20111124

REACTIONS (1)
  - PNEUMONIA PRIMARY ATYPICAL [None]
